FAERS Safety Report 20850474 (Version 11)
Quarter: 2023Q1

REPORT INFORMATION
  Report Type: Spontaneous
  Country: US (occurrence: US)
  Receive Date: 20220519
  Receipt Date: 20230221
  Transmission Date: 20230418
  Serious: Yes (Other)
  Sender: FDA-Public Use
  Company Number: US-PFIZER INC-202200695024

PATIENT
  Age: 64 Year
  Sex: Female

DRUGS (3)
  1. IBRANCE [Suspect]
     Active Substance: PALBOCICLIB
     Dosage: UNK
     Dates: start: 20220506
  2. IBRANCE [Suspect]
     Active Substance: PALBOCICLIB
     Dosage: 100 MG
  3. IBRANCE [Suspect]
     Active Substance: PALBOCICLIB
     Dosage: 75MG PO DAILY FOR 21 DAYS
     Route: 048

REACTIONS (19)
  - Cerebrovascular accident [Unknown]
  - Rash [Recovering/Resolving]
  - Skin ulcer [Recovering/Resolving]
  - Fatigue [Unknown]
  - Migraine [Recovering/Resolving]
  - Malaise [Unknown]
  - Vomiting [Unknown]
  - Nausea [Unknown]
  - White blood cell count decreased [Unknown]
  - Red blood cell count decreased [Unknown]
  - Full blood count abnormal [Recovered/Resolved]
  - Cough [Unknown]
  - Arthralgia [Recovering/Resolving]
  - Back pain [Recovering/Resolving]
  - Musculoskeletal pain [Recovering/Resolving]
  - Facial pain [Recovering/Resolving]
  - Asthenia [Unknown]
  - Product dose omission issue [Unknown]
  - Dysphemia [Unknown]

NARRATIVE: CASE EVENT DATE: 20220101
